FAERS Safety Report 4615831-2 (Version None)
Quarter: 2005Q1

REPORT INFORMATION
  Report Type: 
  Country: None (occurrence: None)
  Receive Date: 20050321
  Receipt Date: 20050316
  Transmission Date: 20050727
  Serious: Yes (Other)
  Sender: FDA-Public Use
  Company Number: 004399

PATIENT
  Sex: Female

DRUGS (5)
  1. MEDROXYPROGESTERONE ACETATE [Suspect]
     Dosage: ORAL
     Route: 048
  2. ESTRADIOL [Suspect]
     Dosage: ORAL
     Route: 048
  3. PROVERA [Suspect]
     Dosage: ORAL
     Route: 048
  4. ESTRACE [Suspect]
     Dosage: ORAL
     Route: 048
  5. ESTRATEST [Suspect]
     Dosage: ORAL
     Route: 048

REACTIONS (2)
  - BREAST CANCER [None]
  - OESTROGEN RECEPTOR ASSAY POSITIVE [None]
